FAERS Safety Report 9685302 (Version 2)
Quarter: 2013Q4

REPORT INFORMATION
  Report Type: Spontaneous
  Country: US (occurrence: US)
  Receive Date: 20131113
  Receipt Date: 20131113
  Transmission Date: 20140711
  Serious: Yes (Other)
  Sender: FDA-Public Use
  Company Number: US-ASTRAZENECA-2007UW22471

PATIENT
  Age: 77 Year
  Sex: Female
  Weight: 70.8 kg

DRUGS (6)
  1. NEXIUM [Suspect]
     Indication: COUGH
     Route: 048
  2. NEXIUM [Suspect]
     Indication: ABDOMINAL PAIN UPPER
     Route: 048
  3. ZESTRIL [Suspect]
     Indication: HYPERTENSION
     Route: 048
  4. NIFEDIPINE [Suspect]
     Indication: HYPERTENSION
     Route: 065
  5. SYNTHROID [Concomitant]
  6. ZETIA [Concomitant]

REACTIONS (6)
  - Hypoaesthesia oral [Unknown]
  - Hypoaesthesia [Unknown]
  - Angioedema [Recovered/Resolved]
  - Cough [Unknown]
  - Blood creatinine increased [Unknown]
  - Rash [Unknown]
